FAERS Safety Report 9309878 (Version 1)
Quarter: 2013Q2

REPORT INFORMATION
  Report Type: Spontaneous
  Country: US (occurrence: US)
  Receive Date: 20130526
  Receipt Date: 20130526
  Transmission Date: 20140414
  Serious: Yes (Other)
  Sender: FDA-Public Use
  Company Number: US-B.I. PHARMACEUTICALS,INC./RIDGEFIELD-2013-BI-14293BP

PATIENT
  Age: 72 Year
  Sex: Male
  Weight: 101 kg

DRUGS (1)
  1. SPIRIVA [Suspect]
     Indication: CHRONIC OBSTRUCTIVE PULMONARY DISEASE
     Dosage: 18 MCG
     Route: 055
     Dates: start: 20130301

REACTIONS (3)
  - Pulmonary hypertension [Not Recovered/Not Resolved]
  - Pulmonary function test increased [Not Recovered/Not Resolved]
  - Dilatation ventricular [Not Recovered/Not Resolved]
